FAERS Safety Report 7319422-4 (Version None)
Quarter: 2011Q1

REPORT INFORMATION
  Report Type: 
  Country: None (occurrence: None)
  Receive Date: 20110228
  Receipt Date: 20100311
  Transmission Date: 20110831
  Serious: Yes (Hospitalization)
  Sender: FDA-Public Use
  Company Number: A0850908A

PATIENT
  Age: 3 Year
  Sex: Female

DRUGS (4)
  1. DILANTIN [Suspect]
     Route: 065
  2. CHILDREN'S TYLENOL SUSPENSION [Suspect]
     Route: 048
  3. LAMICTAL [Suspect]
     Route: 048
  4. DEPAKOTE [Suspect]
     Route: 065

REACTIONS (1)
  - LIVER FUNCTION TEST ABNORMAL [None]
